FAERS Safety Report 17039674 (Version 4)
Quarter: 2020Q1

REPORT INFORMATION
  Report Type: Report from Study
  Country: None (occurrence: GR)
  Receive Date: 20191116
  Receipt Date: 20200319
  Transmission Date: 20200409
  Serious: Yes (Hospitalization, Other)
  Sender: FDA-Public Use
  Company Number: GR-ABBVIE-19K-066-3000533-00

PATIENT
  Age: 67 Year
  Sex: Male
  Weight: 70 kg

DRUGS (6)
  1. DUODOPA [Suspect]
     Active Substance: CARBIDOPA\LEVODOPA
     Indication: PARKINSON^S DISEASE
     Dosage: MORNING DOSE: 12.9ML; CONTINUOUS RATE: 5ML/H; EXTRA DOSE:2ML
     Route: 050
     Dates: start: 20090504, end: 20200218
  2. SEROQUEL [Concomitant]
     Active Substance: QUETIAPINE FUMARATE
     Indication: PRODUCT USED FOR UNKNOWN INDICATION
     Dosage: ONCE DAILY AT NIGHT
     Route: 048
  3. NEUROBION [Concomitant]
     Active Substance: CYANOCOBALAMIN\PYRIDOXINE\THIAMINE
     Indication: PRODUCT USED FOR UNKNOWN INDICATION
     Dosage: (100+200+0.2)MG FREQUENCY:- ONCE DAILY AT NOON
     Route: 048
  4. DUODOPA [Suspect]
     Active Substance: CARBIDOPA\LEVODOPA
     Route: 050
  5. SINEMET [Concomitant]
     Active Substance: CARBIDOPA\LEVODOPA
     Indication: PRODUCT USED FOR UNKNOWN INDICATION
     Dosage: ONCE DAILY AT NIGHT
     Route: 048
  6. FILICINE [Concomitant]
     Indication: PRODUCT USED FOR UNKNOWN INDICATION
     Dosage: ONCE DAILY FOR 15 DAYS PER MONTH
     Route: 048

REACTIONS (15)
  - Wheelchair user [Unknown]
  - Psychomotor hyperactivity [Recovering/Resolving]
  - Post procedural complication [Unknown]
  - Parkinson^s disease [Unknown]
  - Dementia [Unknown]
  - Gait disturbance [Unknown]
  - Mobility decreased [Unknown]
  - Haematocrit decreased [Recovering/Resolving]
  - Hip fracture [Recovering/Resolving]
  - Nervousness [Recovering/Resolving]
  - Patient uncooperative [Unknown]
  - Fall [Unknown]
  - Drug ineffective [Unknown]
  - Fall [Recovered/Resolved]
  - Mental impairment [Unknown]

NARRATIVE: CASE EVENT DATE: 20191104
